FAERS Safety Report 5337332-9 (Version None)
Quarter: 2007Q2

REPORT INFORMATION
  Report Type: 
  Country: None (occurrence: None)
  Receive Date: 20070529
  Receipt Date: 20070521
  Transmission Date: 20071010
  Serious: Yes (Other)
  Sender: FDA-Public Use
  Company Number: JP-SHR-JP-2007-018378

PATIENT
  Sex: Male

DRUGS (2)
  1. MAGNEVIST [Suspect]
     Dosage: 15 ML, 1 DOSE
     Route: 042
     Dates: start: 20070423, end: 20070423
  2. CORTRIL [Concomitant]
     Dosage: 30 MG, 2X/DAY
     Route: 048

REACTIONS (3)
  - MUSCULOSKELETAL STIFFNESS [None]
  - PRURITUS GENERALISED [None]
  - SKIN DISCOMFORT [None]
